FAERS Safety Report 7332656-8 (Version None)
Quarter: 2011Q1

REPORT INFORMATION
  Report Type: 
  Country: None (occurrence: None)
  Receive Date: 20110304
  Receipt Date: 20110301
  Transmission Date: 20110831
  Serious: No
  Sender: FDA-Public Use
  Company Number: US-TEVA-269495USA

PATIENT
  Sex: Female
  Weight: 72.64 kg

DRUGS (2)
  1. TRINESSA [Concomitant]
     Indication: CONTRACEPTION
     Route: 048
     Dates: start: 20060101
  2. PLAN B ONE-STEP [Suspect]
     Indication: POST COITAL CONTRACEPTION
     Route: 048
     Dates: start: 20110228, end: 20110228

REACTIONS (2)
  - BACK PAIN [None]
  - PELVIC PAIN [None]
